FAERS Safety Report 5729531-9 (Version None)
Quarter: 2008Q2

REPORT INFORMATION
  Report Type: 
  Country: None (occurrence: None)
  Receive Date: 20080501
  Receipt Date: 20080418
  Transmission Date: 20081010
  Serious: Yes (Other)
  Sender: FDA-Public Use
  Company Number: 2008000809

PATIENT
  Sex: Male
  Weight: 72 kg

DRUGS (6)
  1. ERLOTINIB (ERLOTINIB HCL) (TABLET) (ERLOTINIB HCL) [Suspect]
     Indication: NON-SMALL CELL LUNG CANCER
     Dosage: 150 MG, QD, ORAL
     Route: 048
     Dates: start: 20060306
  2. RADIATION THERAPY [Suspect]
     Dosage: 2.5 OTHER, 5/WEEK
     Dates: start: 20060306, end: 20060324
  3. DECADRON [Concomitant]
  4. ERYTHROMYCIN [Concomitant]
  5. FLOMAX (MORNIFLUMATE) [Concomitant]
  6. HOZINAN [Concomitant]

REACTIONS (1)
  - LEUKOCYTOCLASTIC VASCULITIS [None]
